FAERS Safety Report 6537832-X (Version None)
Quarter: 2010Q1

REPORT INFORMATION
  Report Type: 
  Country: None (occurrence: None)
  Receive Date: 20100114
  Receipt Date: 20100104
  Transmission Date: 20100710
  Serious: Yes (Life-Threatening)
  Sender: FDA-Public Use
  Company Number: DE-GENENTECH-296643

PATIENT
  Sex: Female
  Weight: 66 kg

DRUGS (8)
  1. RITUXIMAB [Suspect]
     Indication: VASCULITIS
     Dosage: 370 MG/M2, UNK
     Route: 042
     Dates: start: 20080222, end: 20080313
  2. REMICADE [Suspect]
     Indication: VASCULITIS
     Dosage: 300 MG, UNK
     Route: 042
     Dates: start: 20070516, end: 20070727
  3. REMICADE [Suspect]
     Indication: LYMPHOMATOID PAPULOSIS
  4. ORENCIA [Suspect]
     Indication: VASCULITIS
     Dosage: 750 MG, UNK
     Route: 042
     Dates: start: 20081027, end: 20081112
  5. ENBREL [Suspect]
     Indication: VASCULITIS
     Dosage: 25 MG, UNK
     Route: 058
     Dates: start: 20040701, end: 20060301
  6. DECORTIN [Concomitant]
     Indication: DRUG USE FOR UNKNOWN INDICATION
     Dosage: UNK
     Dates: start: 19940101, end: 20090101
  7. METHOTREXATE [Concomitant]
     Indication: DRUG USE FOR UNKNOWN INDICATION
     Dosage: 20 MG, UNK
     Dates: start: 20040107, end: 20071201
  8. PREDNISONE [Concomitant]
     Indication: DRUG USE FOR UNKNOWN INDICATION
     Dosage: UNK
     Dates: start: 19950101, end: 20090101

REACTIONS (1)
  - LYMPHOMA [None]
